FAERS Safety Report 18552025 (Version 3)
Quarter: 2020Q4

REPORT INFORMATION
  Report Type: Spontaneous
  Country: US (occurrence: US)
  Receive Date: 20201126
  Receipt Date: 20201225
  Transmission Date: 20210114
  Serious: Yes (Hospitalization, Other)
  Sender: FDA-Public Use
  Company Number: US-SA-2020SA340710

PATIENT

DRUGS (10)
  1. DUPIXENT [Suspect]
     Active Substance: DUPILUMAB
     Indication: DERMATITIS ATOPIC
     Dosage: 300 MG, QOW
     Route: 058
     Dates: start: 20200812
  2. DESLORATADINE. [Concomitant]
     Active Substance: DESLORATADINE
  3. MONTELUKAST SODIUM. [Concomitant]
     Active Substance: MONTELUKAST SODIUM
  4. OTEZLA [Concomitant]
     Active Substance: APREMILAST
  5. TRETINOIN. [Concomitant]
     Active Substance: TRETINOIN
  6. BACTRIM [Concomitant]
     Active Substance: SULFAMETHOXAZOLE\TRIMETHOPRIM
  7. HYDROXYZINE [Concomitant]
     Active Substance: HYDROXYZINE HYDROCHLORIDE
  8. OLOPATADINE. [Concomitant]
     Active Substance: OLOPATADINE
  9. DULOXETINE. [Concomitant]
     Active Substance: DULOXETINE
  10. EUCRISA [Concomitant]
     Active Substance: CRISABOROLE

REACTIONS (5)
  - Nausea [Unknown]
  - Type 2 diabetes mellitus [Unknown]
  - Visual impairment [Unknown]
  - Leukocytosis [Unknown]
  - Dizziness [Unknown]

NARRATIVE: CASE EVENT DATE: 2020
